FAERS Safety Report 4293800-2 (Version None)
Quarter: 2004Q1

REPORT INFORMATION
  Report Type: 
  Country: None (occurrence: None)
  Receive Date: 20040210
  Receipt Date: 20040128
  Transmission Date: 20041129
  Serious: Yes (Death, Life-Threatening)
  Sender: FDA-Public Use
  Company Number: 430001M04GBR

PATIENT
  Sex: Female

DRUGS (3)
  1. NOVANTRONE [Suspect]
     Indication: MULTIPLE SCLEROSIS
     Dosage: 20 MG, INTRAVENOUS
     Route: 042
     Dates: start: 20031119, end: 20031119
  2. MODAFINIL [Concomitant]
  3. METHYLPREDNISOLONE [Concomitant]

REACTIONS (1)
  - SUDDEN DEATH [None]
